FAERS Safety Report 4386891-1 (Version None)
Quarter: 2004Q2

REPORT INFORMATION
  Report Type: 
  Country: None (occurrence: None)
  Receive Date: 20040625
  Receipt Date: 20040617
  Transmission Date: 20050107
  Serious: Yes (Disabling)
  Sender: FDA-Public Use
  Company Number: 2004219729FR

PATIENT
  Age: 30 Year
  Sex: Female

DRUGS (3)
  1. SULFASALAZINE [Suspect]
     Dosage: 3 G/DAY, ORAL
     Route: 048
     Dates: start: 20020915
  2. CORTICOSTEROIDS [Concomitant]
  3. MESALAMINE [Concomitant]

REACTIONS (5)
  - ABORTION SPONTANEOUS [None]
  - DRUG EXPOSURE DURING PREGNANCY [None]
  - NORMAL NEWBORN [None]
  - NORMAL PREGNANCY [None]
  - PREGNANCY [None]
